FAERS Safety Report 7838193-6 (Version None)
Quarter: 2011Q4

REPORT INFORMATION
  Report Type: 
  Country: None (occurrence: None)
  Receive Date: 20111024
  Receipt Date: 20110928
  Transmission Date: 20120403
  Serious: Yes (Hospitalization)
  Sender: FDA-Public Use
  Company Number: PHHY2011CA86802

PATIENT
  Age: 65 Year
  Sex: Male

DRUGS (2)
  1. FELODIPINE [Suspect]
     Indication: BLOOD PRESSURE
     Dosage: 10 MG, DAILY DOSE
     Route: 048
     Dates: start: 20110101
  2. BISOPROLOL FUMARATE [Suspect]
     Dosage: 5 MG, DAILY DOSE
     Route: 048
     Dates: start: 20110101

REACTIONS (2)
  - HYPERKALAEMIA [None]
  - HYPONATRAEMIA [None]
